FAERS Safety Report 20152573 (Version 1)
Quarter: 2021Q4

REPORT INFORMATION
  Report Type: Report from Study
  Country: CO (occurrence: CO)
  Receive Date: 20211206
  Receipt Date: 20211206
  Transmission Date: 20220303
  Serious: Yes (Hospitalization, Other)
  Sender: FDA-Public Use
  Company Number: CO-NOVARTISPH-NVSC2021CO256914

PATIENT
  Sex: Male
  Weight: 45 kg

DRUGS (1)
  1. OMNITROPE [Suspect]
     Active Substance: SOMATROPIN
     Indication: Growth hormone deficiency
     Dosage: 1.6 MG, QD
     Route: 058
     Dates: start: 20180814, end: 20211026

REACTIONS (4)
  - Arthritis bacterial [Recovered/Resolved]
  - Arthralgia [Unknown]
  - Scratch [Unknown]
  - Pain [Unknown]
